FAERS Safety Report 15631303 (Version 1)
Quarter: 2018Q4

REPORT INFORMATION
  Report Type: Spontaneous
  Country: FR (occurrence: FR)
  Receive Date: 20181119
  Receipt Date: 20181119
  Transmission Date: 20190205
  Serious: Yes (Hospitalization, Other)
  Sender: FDA-Public Use
  Company Number: FR-AUROBINDO-AUR-APL-2018-055535

PATIENT
  Age: 998 Month
  Sex: Female

DRUGS (4)
  1. CORDARONE [Interacting]
     Active Substance: AMIODARONE HYDROCHLORIDE
     Indication: TACHYCARDIA
     Dosage: UNK
     Route: 042
     Dates: start: 201810
  2. NOLVADEX                           /00388701/ [Interacting]
     Active Substance: TAMOXIFEN CITRATE
     Dosage: 40 MILLIGRAM, ONCE A DAY
     Route: 048
  3. ATENOLOL. [Suspect]
     Active Substance: ATENOLOL
     Indication: TACHYCARDIA
     Dosage: UNK
     Route: 065
  4. NOLVADEX                           /00388701/ [Interacting]
     Active Substance: TAMOXIFEN CITRATE
     Indication: METASTASES TO PERITONEUM
     Dosage: 80 MILLIGRAM, ONCE A DAY
     Route: 048
     Dates: start: 20181004

REACTIONS (6)
  - General physical health deterioration [Unknown]
  - Pyloric stenosis [Not Recovered/Not Resolved]
  - Product use in unapproved indication [Unknown]
  - Drug interaction [Unknown]
  - Off label use [Unknown]
  - Drug ineffective [Unknown]

NARRATIVE: CASE EVENT DATE: 201807
